FAERS Safety Report 6284125-4 (Version None)
Quarter: 2009Q3

REPORT INFORMATION
  Report Type: 
  Country: None (occurrence: None)
  Receive Date: 20090723
  Receipt Date: 20090716
  Transmission Date: 20100115
  Serious: Yes (Death)
  Sender: FDA-Public Use
  Company Number: TPA2009A01922

PATIENT
  Age: 57 Year
  Sex: Male

DRUGS (2)
  1. PREVACID [Suspect]
     Indication: GASTROOESOPHAGEAL REFLUX DISEASE
     Dosage: 30 MG, 1 IN 1 D, PER ORAL
     Route: 048
  2. PLAVIX [Concomitant]

REACTIONS (1)
  - MYOCARDIAL INFARCTION [None]
